FAERS Safety Report 7373215-0 (Version None)
Quarter: 2011Q1

REPORT INFORMATION
  Report Type: 
  Country: None (occurrence: None)
  Receive Date: 20110324
  Receipt Date: 20110310
  Transmission Date: 20110831
  Serious: Yes (Other)
  Sender: FDA-Public Use
  Company Number: BR-GENENTECH-307822

PATIENT
  Sex: Female
  Weight: 71 kg

DRUGS (9)
  1. CELEBREX [Concomitant]
     Indication: PRODUCT USED FOR UNKNOWN INDICATION
     Dosage: 200 MG, UNK
  2. SERTRALINE HYDROCHLORIDE [Concomitant]
     Indication: PRODUCT USED FOR UNKNOWN INDICATION
     Dosage: 50 MG, UNK
  3. LABIRIN [Concomitant]
     Indication: PRODUCT USED FOR UNKNOWN INDICATION
  4. BENALET [Concomitant]
     Indication: PRODUCT USED FOR UNKNOWN INDICATION
     Dosage: 30 MG, UNK
  5. ANTI ALLERGY MEDICATION (UNK INGREDIENTS) [Concomitant]
     Indication: PREMEDICATION
  6. OLCADIL [Concomitant]
     Indication: PRODUCT USED FOR UNKNOWN INDICATION
     Dosage: 0.5 MG, UNK
  7. RITUXIMAB [Suspect]
     Indication: RHEUMATOID ARTHRITIS
     Dosage: 1000 MG, UNK
     Route: 042
     Dates: start: 20091201, end: 20091215
  8. FOLIC ACID [Concomitant]
     Indication: PRODUCT USED FOR UNKNOWN INDICATION
     Dosage: 2 MG, UNK
  9. DEFLAZACORT [Concomitant]
     Indication: PRODUCT USED FOR UNKNOWN INDICATION
     Dosage: 6 MG, UNK

REACTIONS (16)
  - ASTHENIA [None]
  - DEPRESSION [None]
  - ARTHRITIS [None]
  - GASTROINTESTINAL PAIN [None]
  - PAIN [None]
  - MOVEMENT DISORDER [None]
  - MALAISE [None]
  - WEIGHT DECREASED [None]
  - FATIGUE [None]
  - GAIT DISTURBANCE [None]
  - FLATULENCE [None]
  - DIARRHOEA [None]
  - HELICOBACTER INFECTION [None]
  - ABDOMINAL PAIN UPPER [None]
  - HEPATIC PAIN [None]
  - WEIGHT INCREASED [None]
